FAERS Safety Report 9734604 (Version 2)
Quarter: 2014Q1

REPORT INFORMATION
  Report Type: Spontaneous
  Country: US (occurrence: US)
  Receive Date: 20131206
  Receipt Date: 20140228
  Transmission Date: 20141002
  Serious: Yes (Other)
  Sender: FDA-Public Use
  Company Number: US-BEH-2013039151

PATIENT
  Age: 37 Year
  Sex: Female

DRUGS (1)
  1. HIZENTRA [Suspect]
     Route: 058

REACTIONS (11)
  - Sepsis [Recovered/Resolved]
  - Gastric fistula [Not Recovered/Not Resolved]
  - Peritonitis [Recovered/Resolved]
  - Adrenocortical insufficiency acute [Recovered/Resolved]
  - Blood cortisol [Recovered/Resolved]
  - White blood cell count abnormal [Recovered/Resolved]
  - Vomiting [Recovered/Resolved]
  - Fall [Not Recovered/Not Resolved]
  - Ligament rupture [Not Recovered/Not Resolved]
  - Tendon injury [Not Recovered/Not Resolved]
  - Infusion site bruising [Not Recovered/Not Resolved]
